FAERS Safety Report 18280554 (Version 1)
Quarter: 2020Q3

REPORT INFORMATION
  Report Type: Spontaneous
  Country: CA (occurrence: CA)
  Receive Date: 20200918
  Receipt Date: 20200918
  Transmission Date: 20201103
  Serious: Yes (Other)
  Sender: FDA-Public Use
  Company Number: CA-TEVA-2020-CA-1829254

PATIENT
  Age: 66 Year
  Sex: Female
  Weight: 68.1 kg

DRUGS (15)
  1. PMS?QUETIAPINE [Suspect]
     Active Substance: QUETIAPINE
     Indication: DEPRESSION
     Dosage: 1 DOSAGE FORMS DAILY;
     Route: 048
  2. RATIO?METFORMIN [Concomitant]
     Active Substance: METFORMIN HYDROCHLORIDE
  3. TRAZODONE [Concomitant]
     Active Substance: TRAZODONE HYDROCHLORIDE
  4. TEVA?VENLAFAXINE XR [Suspect]
     Active Substance: VENLAFAXINE HYDROCHLORIDE
     Indication: DEPRESSION
     Dosage: 37.5 MILLIGRAM DAILY;
     Route: 048
  5. PMS?PERINDOPRIL [Concomitant]
  6. VITAMIN D [Concomitant]
     Active Substance: VITAMIN D NOS
  7. TEVA?VENLAFAXINE XR [Suspect]
     Active Substance: VENLAFAXINE HYDROCHLORIDE
     Indication: ANXIETY
  8. OXYNEO [Concomitant]
     Active Substance: OXYCODONE
  9. PMS?ASA EC [Concomitant]
  10. SYNTHROID [Concomitant]
     Active Substance: LEVOTHYROXINE SODIUM
  11. PMS?QUETIAPINE [Suspect]
     Active Substance: QUETIAPINE
     Indication: ANXIETY
  12. CENTRUM WOMEN [Concomitant]
     Active Substance: VITAMINS
  13. PMS?MIRTAZAPINE [Concomitant]
     Active Substance: MIRTAZAPINE
  14. PMS?RISPERIDONE [Concomitant]
  15. APO METOPROLOL [Concomitant]
     Active Substance: METOPROLOL

REACTIONS (15)
  - Irritability [Unknown]
  - Nausea [Unknown]
  - Arthralgia [Unknown]
  - Depressive symptom [Unknown]
  - Headache [Unknown]
  - Myalgia [Unknown]
  - Thyroid disorder [Unknown]
  - Constipation [Unknown]
  - Dry mouth [Unknown]
  - Mood swings [Unknown]
  - Anxiety [Unknown]
  - Hot flush [Unknown]
  - Insomnia [Unknown]
  - Mania [Unknown]
  - Blood glucose increased [Unknown]
